FAERS Safety Report 5541670-4 (Version None)
Quarter: 2007Q4

REPORT INFORMATION
  Report Type: 
  Country: None (occurrence: None)
  Receive Date: 20071210
  Receipt Date: 20071127
  Transmission Date: 20080405
  Serious: Yes (Hospitalization)
  Sender: FDA-Public Use
  Company Number: PL-AMGEN-UK249200

PATIENT
  Sex: Male

DRUGS (4)
  1. NEUPOGEN [Suspect]
     Indication: CHEMOTHERAPY
     Route: 058
     Dates: start: 20071013, end: 20071017
  2. DENOSUMAB - PRIOR TO STUDY DRUG ADMINISTRATION [Suspect]
     Indication: METASTASES TO BONE
  3. GEMCITABINE [Concomitant]
     Dates: start: 20071004
  4. CARBOPLATIN [Concomitant]
     Dates: start: 20071005

REACTIONS (2)
  - GENERAL PHYSICAL CONDITION ABNORMAL [None]
  - WHITE BLOOD CELL COUNT INCREASED [None]
